FAERS Safety Report 26111577 (Version 1)
Quarter: 2025Q4

REPORT INFORMATION
  Report Type: Report from Study
  Country: US (occurrence: US)
  Receive Date: 20251202
  Receipt Date: 20251202
  Transmission Date: 20260117
  Serious: Yes (Hospitalization, Other)
  Sender: ACADIA PHARMACEUTICALS
  Company Number: US-ACADIA PHARMACEUTICALS INC.-ACA-2025-PIM-012760

PATIENT
  Age: 72 Year
  Sex: Male

DRUGS (13)
  1. NUPLAZID [Suspect]
     Active Substance: PIMAVANSERIN TARTRATE
     Indication: Parkinson^s disease
     Dosage: 34 MILLIGRAM, QD
     Route: 048
     Dates: end: 20251122
  2. RIVASTIGMINE [Concomitant]
     Active Substance: RIVASTIGMINE
  3. MEMANTINE [Concomitant]
     Active Substance: MEMANTINE
  4. LISINOPRIL [Concomitant]
     Active Substance: LISINOPRIL
  5. CARBIDOPA\LEVODOPA [Concomitant]
     Active Substance: CARBIDOPA\LEVODOPA
  6. GEMTESA [Concomitant]
     Active Substance: VIBEGRON
  7. KETOCONAZOLE [Concomitant]
     Active Substance: KETOCONAZOLE
  8. FLUOCINOLONE ACETONIDE [Concomitant]
     Active Substance: FLUOCINOLONE ACETONIDE
  9. SELENIUM SULFIDE [Concomitant]
     Active Substance: SELENIUM SULFIDE
  10. QUETIAPINE FUMARATE [Concomitant]
     Active Substance: QUETIAPINE FUMARATE
  11. MUPIROCIN [Concomitant]
     Active Substance: MUPIROCIN
  12. GEN7T [Concomitant]
     Active Substance: LIDOCAINE
  13. TRIAMCINOLONE ACETONIDE [Concomitant]
     Active Substance: TRIAMCINOLONE ACETONIDE

REACTIONS (2)
  - Ileus [Unknown]
  - Delirium [Unknown]

NARRATIVE: CASE EVENT DATE: 20251122
